FAERS Safety Report 6189268-1 (Version None)
Quarter: 2009Q2

REPORT INFORMATION
  Report Type: 
  Country: None (occurrence: None)
  Receive Date: 20090512
  Receipt Date: 20090506
  Transmission Date: 20091009
  Serious: Yes (Hospitalization, Other)
  Sender: FDA-Public Use
  Company Number: 2009AL000004

PATIENT
  Age: 64 Year
  Sex: Female

DRUGS (5)
  1. LOVASTATIN [Suspect]
     Indication: HYPERCHOLESTEROLAEMIA
     Dosage: 20 MG; QD; PO
     Route: 048
     Dates: start: 20061009
  2. TOPROL-XL [Concomitant]
  3. CIPROFLOXACIN [Concomitant]
  4. BENICAR [Concomitant]
  5. VITAPLEX [Concomitant]

REACTIONS (1)
  - HEPATIC ENCEPHALOPATHY [None]
